FAERS Safety Report 4651978-2 (Version None)
Quarter: 2005Q3

REPORT INFORMATION
  Report Type: 
  Country: None (occurrence: None)
  Receive Date: 20050502
  Receipt Date: 20050418
  Transmission Date: 20060218
  Serious: Yes (Hospitalization)
  Sender: FDA-Public Use
  Company Number: US-2005-005755

PATIENT
  Age: 51 Year
  Sex: Female

DRUGS (1)
  1. BETASERON [Suspect]
     Indication: MULTIPLE SCLEROSIS
     Dosage: 8 MIU , EVERY 2D, SUBCUTANEOUS
     Route: 058
     Dates: start: 20040626

REACTIONS (2)
  - PARALYSIS [None]
  - VISUAL DISTURBANCE [None]
